FAERS Safety Report 6787285-1 (Version None)
Quarter: 2010Q2

REPORT INFORMATION
  Report Type: 
  Country: None (occurrence: None)
  Receive Date: 20100623
  Receipt Date: 20060808
  Transmission Date: 20101027
  Serious: No
  Sender: FDA-Public Use
  Company Number: US-PFIZER INC-2006079827

PATIENT
  Sex: Female

DRUGS (1)
  1. GEODON [Suspect]
     Dosage: EVERY DAY
     Route: 048

REACTIONS (4)
  - FATIGUE [None]
  - FEELING ABNORMAL [None]
  - HEART RATE INCREASED [None]
  - MALAISE [None]
